FAERS Safety Report 7323621-5 (Version None)
Quarter: 2011Q1

REPORT INFORMATION
  Report Type: 
  Country: None (occurrence: None)
  Receive Date: 20110301
  Receipt Date: 20110217
  Transmission Date: 20110831
  Serious: Yes (Hospitalization, Other)
  Sender: FDA-Public Use
  Company Number: PHHY2010US63901

PATIENT
  Sex: Male

DRUGS (5)
  1. OXYCODONE [Concomitant]
     Dosage: 5 MG, UNK
  2. ATIVAN [Concomitant]
     Dosage: 1 MG, UNK
  3. AMOXICILLIN [Concomitant]
     Dosage: 875 MG, DAILY
     Route: 048
  4. EXJADE [Suspect]
     Indication: SICKLE CELL ANAEMIA
     Dosage: 1000 MG, QD
     Route: 048
  5. EXJADE [Suspect]
     Indication: IRON OVERLOAD

REACTIONS (15)
  - PAIN [None]
  - VIOLENCE-RELATED SYMPTOM [None]
  - BLOOD BILIRUBIN INCREASED [None]
  - ACUTE CORONARY SYNDROME [None]
  - ABNORMAL BEHAVIOUR [None]
  - BLOOD GLUCOSE INCREASED [None]
  - BLOOD SODIUM DECREASED [None]
  - HAEMOGLOBIN DECREASED [None]
  - DELUSION [None]
  - PROTEIN TOTAL INCREASED [None]
  - HAEMATOCRIT DECREASED [None]
  - HALLUCINATION [None]
  - BLOOD ALKALINE PHOSPHATASE INCREASED [None]
  - RED CELL DISTRIBUTION WIDTH INCREASED [None]
  - LYMPHOCYTE COUNT DECREASED [None]
